FAERS Safety Report 14101825 (Version 1)
Quarter: 2017Q4

REPORT INFORMATION
  Report Type: Spontaneous
  Country: US (occurrence: US)
  Receive Date: 20171018
  Receipt Date: 20171018
  Transmission Date: 20180321
  Serious: Yes (Hospitalization)
  Sender: FDA-Public Use
  Company Number: None

PATIENT
  Age: 37 Year
  Sex: Male
  Weight: 69.75 kg

DRUGS (4)
  1. ZIPRASIDONE HYDROCHLORIDE. [Suspect]
     Active Substance: ZIPRASIDONE HYDROCHLORIDE
     Indication: DEPRESSION
     Dosage: ?          QUANTITY:1 CAPSULE(S);?
     Route: 048
     Dates: start: 20170817, end: 20170824
  2. OLANZAPINE. [Concomitant]
     Active Substance: OLANZAPINE
  3. MULTI VITAMIN [Concomitant]
     Active Substance: VITAMINS
  4. LITHIUM. [Concomitant]
     Active Substance: LITHIUM

REACTIONS (6)
  - Delusion [None]
  - Panic attack [None]
  - Road traffic accident [None]
  - Anxiety [None]
  - Abnormal behaviour [None]
  - Tremor [None]

NARRATIVE: CASE EVENT DATE: 20170825
